FAERS Safety Report 8811459 (Version 1)
Quarter: 2012Q4

REPORT INFORMATION
  Report Type: Spontaneous
  Country: US (occurrence: None)
  Receive Date: 20120925
  Receipt Date: 20120925
  Transmission Date: 20130627
  Serious: Yes (Hospitalization, Other)
  Sender: FDA-Public Use
  Company Number: None

PATIENT
  Age: 60 Year
  Sex: Male

DRUGS (3)
  1. RIBAVIRIN [Suspect]
     Indication: HEPATITIS C
     Route: 048
     Dates: start: 201203, end: 20120914
  2. PEGASYS [Suspect]
     Indication: HEPATITIS C
     Route: 058
     Dates: start: 201204, end: 20120914
  3. VICTRELIS [Concomitant]

REACTIONS (5)
  - Anaemia [None]
  - Decreased appetite [None]
  - Weight decreased [None]
  - Pyrexia [None]
  - Syncope [None]
